FAERS Safety Report 7075067-5 (Version None)
Quarter: 2010Q4

REPORT INFORMATION
  Report Type: 
  Country: None (occurrence: None)
  Receive Date: 20101029
  Receipt Date: 20100503
  Transmission Date: 20110411
  Serious: No
  Sender: FDA-Public Use
  Company Number: US-WYE-H14585110

PATIENT
  Age: 23 Year
  Sex: Male
  Weight: 88.53 kg

DRUGS (3)
  1. ALAVERT [Suspect]
     Indication: HYPERSENSITIVITY
     Route: 048
     Dates: start: 20100407, end: 20100407
  2. ALAVERT [Suspect]
     Indication: LACRIMATION INCREASED
  3. ALAVERT [Suspect]
     Indication: RHINORRHOEA

REACTIONS (2)
  - DRUG INEFFECTIVE [None]
  - OVERDOSE [None]
